FAERS Safety Report 7923350-0 (Version None)
Quarter: 2011Q4

REPORT INFORMATION
  Report Type: 
  Country: None (occurrence: None)
  Receive Date: 20111117
  Receipt Date: 20110201
  Transmission Date: 20120403
  Serious: No
  Sender: FDA-Public Use
  Company Number: US-AMGEN-USASP2011006102

PATIENT
  Sex: Male

DRUGS (4)
  1. CLOBETASOL [Concomitant]
  2. CELEBREX [Concomitant]
  3. ENBREL [Suspect]
     Indication: PSORIASIS
     Dosage: 50 MG, 2 TIMES/WK
     Dates: start: 20110101
  4. VECTICAL [Concomitant]

REACTIONS (1)
  - MOOD SWINGS [None]
